FAERS Safety Report 23587920 (Version 2)
Quarter: 2025Q4

REPORT INFORMATION
  Report Type: Spontaneous
  Country: US (occurrence: US)
  Receive Date: 20240301
  Receipt Date: 20251002
  Transmission Date: 20260118
  Serious: Yes (Hospitalization)
  Sender: PHARMING GROUP
  Company Number: US-PHARMING-PHAUS2024000180

PATIENT

DRUGS (6)
  1. RUCONEST [Suspect]
     Active Substance: CONESTAT ALFA
     Indication: Hereditary angioedema
     Dosage: 3200 IU, AS NEEDED
     Route: 042
     Dates: start: 202312
  2. RUCONEST [Suspect]
     Active Substance: CONESTAT ALFA
     Dosage: 3200 IU, AS NEEDED
     Route: 042
     Dates: start: 202312
  3. ICATIBANT [Concomitant]
     Active Substance: ICATIBANT ACETATE
     Indication: Product used for unknown indication
  4. TAKHZYRO [Concomitant]
     Active Substance: LANADELUMAB-FLYO
     Indication: Product used for unknown indication
  5. HEPARIN SODIUM [Concomitant]
     Active Substance: HEPARIN SODIUM
     Indication: Product used for unknown indication
  6. DIPHENHYDRAMINE [Concomitant]
     Active Substance: DIPHENHYDRAMINE
     Indication: Product used for unknown indication

REACTIONS (3)
  - Hysterectomy [Unknown]
  - Product use in unapproved indication [Unknown]
  - Weight decreased [Unknown]
